FAERS Safety Report 10994054 (Version 2)
Quarter: 2015Q2

REPORT INFORMATION
  Report Type: Spontaneous
  Country: US (occurrence: US)
  Receive Date: 20150407
  Receipt Date: 20150514
  Transmission Date: 20150821
  Serious: Yes (Hospitalization, Other)
  Sender: FDA-Public Use
  Company Number: US-PFIZER INC-2015114980

PATIENT
  Age: 67 Year
  Sex: Male

DRUGS (4)
  1. GLIPIZIDE. [Suspect]
     Active Substance: GLIPIZIDE
     Indication: DIABETES MELLITUS
     Dosage: 10 MG, 2X/DAY
     Dates: end: 201305
  2. NEXIUM [Concomitant]
     Active Substance: ESOMEPRAZOLE MAGNESIUM
     Dosage: UNK
  3. SPIRONOLACTONE. [Concomitant]
     Active Substance: SPIRONOLACTONE
     Dosage: UNK
  4. METFORMIN HCL [Suspect]
     Active Substance: METFORMIN HYDROCHLORIDE
     Indication: DIABETES MELLITUS
     Dosage: 1000 MG, 2X/DAY
     Dates: end: 201305

REACTIONS (9)
  - Hepatic cirrhosis [Unknown]
  - Hepatic function abnormal [Not Recovered/Not Resolved]
  - Varices oesophageal [Unknown]
  - Liver disorder [Unknown]
  - Libido decreased [Unknown]
  - Erectile dysfunction [Unknown]
  - Ischaemia [Unknown]
  - Gastrointestinal haemorrhage [Recovered/Resolved]
  - Incarcerated hernia [Unknown]

NARRATIVE: CASE EVENT DATE: 201303
